FAERS Safety Report 18609680 (Version 3)
Quarter: 2021Q3

REPORT INFORMATION
  Report Type: Spontaneous
  Country: US (occurrence: US)
  Receive Date: 20201214
  Receipt Date: 20210804
  Transmission Date: 20211014
  Serious: No
  Sender: FDA-Public Use
  Company Number: US-SA-2020SA356735

PATIENT
  Sex: Female

DRUGS (5)
  1. MIRENA [Concomitant]
     Active Substance: LEVONORGESTREL
     Dosage: 52 M IUD 20 MCG/24
     Route: 015
  2. SUMATRIPTAN. [Concomitant]
     Active Substance: SUMATRIPTAN
  3. HYDROXYZINE [Concomitant]
     Active Substance: HYDROXYZINE HYDROCHLORIDE
  4. CYMBALTA [Concomitant]
     Active Substance: DULOXETINE HYDROCHLORIDE
  5. AUBAGIO [Suspect]
     Active Substance: TERIFLUNOMIDE
     Indication: MULTIPLE SCLEROSIS
     Dosage: 1 DF, QD
     Route: 048

REACTIONS (4)
  - Fatigue [Recovered/Resolved]
  - Illness [Unknown]
  - Memory impairment [Recovered/Resolved]
  - Gastroenteritis viral [Unknown]
